FAERS Safety Report 15887892 (Version 1)
Quarter: 2019Q1

REPORT INFORMATION
  Report Type: Spontaneous
  Country: US (occurrence: US)
  Receive Date: 20190130
  Receipt Date: 20190130
  Transmission Date: 20190417
  Serious: Yes (Hospitalization)
  Sender: FDA-Public Use
  Company Number: US-ELI_LILLY_AND_COMPANY-US201901013352

PATIENT
  Age: 52 Year
  Sex: Male

DRUGS (2)
  1. BASAGLAR [Suspect]
     Active Substance: INSULIN GLARGINE
     Dosage: 45 U, EACH EVENING (NIGHT)
     Route: 065
     Dates: start: 201807
  2. BASAGLAR [Suspect]
     Active Substance: INSULIN GLARGINE
     Indication: TYPE 2 DIABETES MELLITUS
     Dosage: 18 U, EACH MORNING
     Route: 065
     Dates: start: 201807

REACTIONS (2)
  - Inappropriate schedule of product administration [Unknown]
  - Pancreatic carcinoma [Recovering/Resolving]

NARRATIVE: CASE EVENT DATE: 201808
